FAERS Safety Report 23756408 (Version 3)
Quarter: 2024Q2

REPORT INFORMATION
  Report Type: Report from Study
  Country: US (occurrence: US)
  Receive Date: 20240418
  Receipt Date: 20240628
  Transmission Date: 20240716
  Serious: Yes (Hospitalization, Other)
  Sender: FDA-Public Use
  Company Number: US-ROCHE-3545238

PATIENT

DRUGS (2)
  1. XOLAIR [Suspect]
     Active Substance: OMALIZUMAB
     Indication: Product used for unknown indication
     Route: 065
  2. PREDNISONE [Suspect]
     Active Substance: PREDNISONE
     Indication: Product used for unknown indication
     Route: 065

REACTIONS (20)
  - Urticaria [Unknown]
  - Contusion [Unknown]
  - Angioedema [Unknown]
  - Anaphylactic reaction [Unknown]
  - Arthralgia [Unknown]
  - Fatigue [Unknown]
  - Night sweats [Unknown]
  - Mast cell activation syndrome [Unknown]
  - Rash macular [Unknown]
  - Pruritus [Unknown]
  - Depression [Unknown]
  - Connective tissue disorder [Unknown]
  - Sleep apnoea syndrome [Unknown]
  - Vitamin D deficiency [Unknown]
  - Cluster headache [Unknown]
  - Anxiety [Unknown]
  - Fibromyalgia [Unknown]
  - Trigeminal neuralgia [Unknown]
  - Infertility [Unknown]
  - Mass [Unknown]
